FAERS Safety Report 5328186-5 (Version None)
Quarter: 2007Q2

REPORT INFORMATION
  Report Type: 
  Country: None (occurrence: None)
  Receive Date: 20070514
  Receipt Date: 20070503
  Transmission Date: 20071010
  Serious: Yes (Hospitalization)
  Sender: FDA-Public Use
  Company Number: 2007SP004799

PATIENT
  Age: 61 Year
  Sex: Male

DRUGS (5)
  1. VIRAFERONPEG [Suspect]
     Indication: HEPATITIS C
     Dosage: 150 MCG; QW; SC
     Route: 058
     Dates: start: 20030214, end: 20041213
  2. VIRAFERONPEG [Suspect]
     Indication: HEPATITIS C
     Dosage: 150 MCG; QW; SC
     Route: 058
     Dates: start: 20061120, end: 20061225
  3. REBETOL [Suspect]
     Indication: HEPATITIS C
     Dosage: 800 MG; QD; PO
     Route: 048
     Dates: start: 20030213, end: 20041213
  4. REBETOL [Suspect]
     Indication: HEPATITIS C
     Dosage: 800 MG; QD; PO
     Route: 048
     Dates: start: 20061120
  5. DEROXAT [Concomitant]

REACTIONS (10)
  - ANAEMIA [None]
  - ASTHENIA [None]
  - CHEST DISCOMFORT [None]
  - CHEST PAIN [None]
  - COUGH [None]
  - CRYPTOGENIC ORGANISING PNEUMONIA [None]
  - DYSPNOEA EXERTIONAL [None]
  - HOT FLUSH [None]
  - LUNG DISORDER [None]
  - VIRAEMIA [None]
